FAERS Safety Report 4613186-0 (Version None)
Quarter: 2005Q1

REPORT INFORMATION
  Report Type: 
  Country: None (occurrence: None)
  Receive Date: 20050316
  Receipt Date: 20050307
  Transmission Date: 20050727
  Serious: Yes (Other)
  Sender: FDA-Public Use
  Company Number: 2005042009

PATIENT
  Age: 27 Year
  Sex: Female
  Weight: 58.9676 kg

DRUGS (2)
  1. DEPO-PROVERA [Suspect]
     Indication: ILL-DEFINED DISORDER
     Dosage: 150 MG (150 MG, 1ST INJECTION. INTERVAL NOT PROVIDED.), INTRAMUSCULAR
     Route: 030
     Dates: start: 19991107, end: 19991107
  2. DEPO-PROVERA [Suspect]
     Indication: ILL-DEFINED DISORDER
     Dosage: 150 MG (150 MG, 1ST INJECTION. INTERVAL NOT PROVIDED.), INTRAMUSCULAR
     Route: 030
     Dates: start: 20041222, end: 20041222

REACTIONS (2)
  - BONE DENSITY DECREASED [None]
  - TOOTH LOSS [None]
